FAERS Safety Report 18128538 (Version 1)
Quarter: 2020Q3

REPORT INFORMATION
  Report Type: Spontaneous
  Country: US (occurrence: US)
  Receive Date: 20200810
  Receipt Date: 20200810
  Transmission Date: 20201103
  Serious: Yes (Hospitalization, Other)
  Sender: FDA-Public Use
  Company Number: US-SA-2020SA200223

PATIENT

DRUGS (12)
  1. ALBUTEROL [SALBUTAMOL] [Concomitant]
     Active Substance: ALBUTEROL
     Dosage: 2 PUFF, 2 DAYS
     Route: 055
     Dates: start: 20200229, end: 20200306
  2. CAFFEINE. [Concomitant]
     Active Substance: CAFFEINE
     Dosage: 1 SERVING, QD
     Route: 048
     Dates: start: 20190929, end: 20200624
  3. IRON [Concomitant]
     Active Substance: IRON
     Indication: IRON DEFICIENCY
     Dosage: 325 MG, QD
     Route: 048
     Dates: start: 20191107, end: 20200414
  4. RHOGAM [Concomitant]
     Active Substance: HUMAN RHO(D) IMMUNE GLOBULIN
     Indication: BLOOD TYPE INCOMPATIBILITY
     Dosage: 1 DF, QD
     Dates: start: 20191211, end: 20191211
  5. ADVAIR HFA [Concomitant]
     Active Substance: FLUTICASONE PROPIONATE\SALMETEROL XINAFOATE
     Indication: ASTHMA
     Dosage: 250 UG, 10 TOTAL
     Route: 055
     Dates: start: 20190929, end: 20200130
  6. DUPIXENT [Suspect]
     Active Substance: DUPILUMAB
     Indication: DERMATITIS ATOPIC
     Dosage: 300 MG, QOW
     Route: 058
     Dates: start: 20181116, end: 20200624
  7. FLU VACCINE VII [Concomitant]
     Active Substance: INFLUENZA VIRUS VACCINE
     Dosage: 1 DF, 1X
     Route: 030
     Dates: start: 20200116, end: 20200116
  8. ADVAIR HFA [Concomitant]
     Active Substance: FLUTICASONE PROPIONATE\SALMETEROL XINAFOATE
     Dosage: 90 UG, 4 TOTAL
     Route: 055
     Dates: start: 20200131, end: 20200305
  9. CLOTRIMAZOLE. [Concomitant]
     Active Substance: CLOTRIMAZOLE
     Indication: FUNGAL INFECTION
     Dosage: 1 DF, QD
     Route: 061
     Dates: start: 20200110, end: 20200117
  10. ALBUTEROL [SALBUTAMOL] [Concomitant]
     Active Substance: ALBUTEROL
     Indication: ASTHMA
     Dosage: 180 UG, 6 TOTAL
     Route: 055
     Dates: start: 20190929, end: 20200130
  11. RHOGAM [Concomitant]
     Active Substance: HUMAN RHO(D) IMMUNE GLOBULIN
     Dosage: 1 DF, QD
     Dates: start: 20200501, end: 20200501
  12. CETIRIZINE HYDROCHLORIDE. [Concomitant]
     Active Substance: CETIRIZINE HYDROCHLORIDE
     Indication: HYPERSENSITIVITY
     Dosage: 10 MG, QD
     Route: 048
     Dates: start: 20200510, end: 20200515

REACTIONS (3)
  - Exposure during pregnancy [Unknown]
  - Haemorrhage urinary tract [Unknown]
  - Urinary tract infection [Unknown]
